FAERS Safety Report 6460954-9 (Version None)
Quarter: 2009Q4

REPORT INFORMATION
  Report Type: 
  Country: None (occurrence: None)
  Receive Date: 20091130
  Receipt Date: 20091116
  Transmission Date: 20100525
  Serious: Yes (Congenital Anomaly)
  Sender: FDA-Public Use
  Company Number: GB-CELGENEUS-167-20484-09111585

PATIENT
  Sex: Male
  Weight: 2.81 kg

DRUGS (4)
  1. INNOHEP [Suspect]
     Dosage: 3500-10000IU
     Route: 064
     Dates: start: 20000223, end: 20000823
  2. PROSTAGLANDIN [Concomitant]
     Route: 064
     Dates: start: 20000821, end: 20000822
  3. PETHIDIN [Concomitant]
     Route: 064
     Dates: start: 20000822, end: 20000822
  4. SYNTOMETRINE [Concomitant]
     Route: 064
     Dates: start: 20000822, end: 20000822

REACTIONS (2)
  - DRUG EXPOSURE DURING PREGNANCY [None]
  - PREAURICULAR CYST [None]
